FAERS Safety Report 6233201-0 (Version None)
Quarter: 2009Q2

REPORT INFORMATION
  Report Type: 
  Country: None (occurrence: None)
  Receive Date: 20090617
  Receipt Date: 20090609
  Transmission Date: 20091009
  Serious: Yes (Other)
  Sender: FDA-Public Use
  Company Number: PHHY2009BR22924

PATIENT
  Sex: Female

DRUGS (3)
  1. RASILEZ [Suspect]
  2. CHLORTHALIDONE [Concomitant]
  3. AMLODIPINE [Concomitant]

REACTIONS (1)
  - VISUAL ACUITY REDUCED [None]
